FAERS Safety Report 6445884-0 (Version None)
Quarter: 2009Q4

REPORT INFORMATION
  Report Type: 
  Country: None (occurrence: None)
  Receive Date: 20091119
  Receipt Date: 20090918
  Transmission Date: 20100525
  Serious: No
  Sender: FDA-Public Use
  Company Number: A0645409A

PATIENT
  Age: 64 Year
  Sex: Female

DRUGS (7)
  1. WELLBUTRIN SR [Suspect]
     Indication: DEPRESSION
     Dosage: 150MG PER DAY
     Route: 048
     Dates: start: 20090701
  2. WELLBUTRIN XL [Suspect]
     Indication: DEPRESSION
     Dosage: 300MG PER DAY
     Route: 048
     Dates: start: 20070101
  3. PAROXETINE HCL [Suspect]
     Indication: DEPRESSION
     Route: 048
     Dates: start: 20060101, end: 20070101
  4. KLONOPIN [Concomitant]
  5. LISINOPRIL [Concomitant]
  6. TETRACYCLINE [Concomitant]
  7. CLONAZEPAM [Concomitant]

REACTIONS (3)
  - ANORGASMIA [None]
  - DRUG INEFFECTIVE [None]
  - FEELING ABNORMAL [None]
